FAERS Safety Report 9033183 (Version 1)
Quarter: 2013Q1

REPORT INFORMATION
  Report Type: Spontaneous
  Country: BR (occurrence: BR)
  Receive Date: 20130128
  Receipt Date: 20130128
  Transmission Date: 20140127
  Serious: Yes (Other)
  Sender: FDA-Public Use
  Company Number: BR-ASTRAZENECA-2013SE03026

PATIENT
  Age: 740 Month
  Sex: Female

DRUGS (3)
  1. ATACAND COMB [Suspect]
     Indication: HYPERTENSION
     Dosage: 16/2,5MG, 1/2 TABLET DAILY
     Route: 048
     Dates: start: 201204, end: 2012
  2. ATACAND COMB [Suspect]
     Indication: HYPERTENSION
     Dosage: 16/2,5MG, 1 TABLET DAILY
     Route: 048
  3. ATACAND [Suspect]
     Indication: HYPERTENSION
     Route: 048
     Dates: end: 2012

REACTIONS (4)
  - Hypertension [Recovered/Resolved]
  - Circumstance or information capable of leading to medication error [Unknown]
  - Off label use [Not Recovered/Not Resolved]
  - Drug ineffective [Recovered/Resolved]
